FAERS Safety Report 6438911-8 (Version None)
Quarter: 2009Q4

REPORT INFORMATION
  Report Type: 
  Country: None (occurrence: None)
  Receive Date: 20091113
  Receipt Date: 20091109
  Transmission Date: 20100525
  Serious: Yes (Death, Hospitalization)
  Sender: FDA-Public Use
  Company Number: PHHY2009BR16935

PATIENT
  Sex: Male

DRUGS (8)
  1. FORADIL [Suspect]
     Indication: LUNG DISORDER
     Dosage: 1 DF, BID
     Dates: start: 20040101
  2. FORADIL [Suspect]
     Indication: CHRONIC OBSTRUCTIVE PULMONARY DISEASE
     Dosage: UNK
     Dates: start: 20080101
  3. FORASEQ [Suspect]
     Indication: CHRONIC OBSTRUCTIVE PULMONARY DISEASE
     Dosage: 12/400 MCG TWICE A DAY
     Dates: start: 20060101
  4. DIGOXIN [Concomitant]
     Indication: CARDIAC FAILURE CONGESTIVE
     Dosage: HALF A TABLET A DAY
  5. BAMIFIX [Concomitant]
  6. PREDNISOLONE [Concomitant]
  7. SPIRIVA [Concomitant]
  8. OMEPRAZOLE [Concomitant]
     Dosage: 1 TABLET/DAY

REACTIONS (6)
  - ASPIRATION TRACHEAL ABNORMAL [None]
  - DYSPNOEA [None]
  - ENDOTRACHEAL INTUBATION [None]
  - INCREASED BRONCHIAL SECRETION [None]
  - LUNG INFECTION [None]
  - RESPIRATORY FAILURE [None]
